FAERS Safety Report 7704867-0 (Version None)
Quarter: 2011Q3

REPORT INFORMATION
  Report Type: 
  Country: None (occurrence: None)
  Receive Date: 20110823
  Receipt Date: 20110808
  Transmission Date: 20111222
  Serious: Yes (Other)
  Sender: FDA-Public Use
  Company Number: FR-WATSON-2011-13239

PATIENT

DRUGS (1)
  1. CEFUROXIME [Suspect]
     Indication: CATARACT OPERATION
     Dosage: 40-50 MG,
     Route: 031

REACTIONS (7)
  - RETINAL DETACHMENT [None]
  - VISUAL ACUITY REDUCED [None]
  - MACULAR OEDEMA [None]
  - OVERDOSE [None]
  - DRUG ADMINISTRATION ERROR [None]
  - EYE INFLAMMATION [None]
  - INTRAOCULAR PRESSURE INCREASED [None]
